FAERS Safety Report 5899825-5 (Version None)
Quarter: 2008Q3

REPORT INFORMATION
  Report Type: 
  Country: None (occurrence: None)
  Receive Date: 20080926
  Receipt Date: 20080915
  Transmission Date: 20090109
  Serious: Yes (Other)
  Sender: FDA-Public Use
  Company Number: US-AVENTIS-200816099US

PATIENT
  Sex: Male
  Weight: 77.56 kg

DRUGS (4)
  1. TRENTAL [Suspect]
     Dates: start: 20070101
  2. DILTIAZEM HCL [Concomitant]
     Dosage: DOSE: UNK
  3. NADOLOL [Concomitant]
     Dosage: DOSE: UNK
     Dates: start: 19981001
  4. ASPIRIN [Concomitant]
     Dosage: DOSE: UNK

REACTIONS (2)
  - GASTRIC CANCER [None]
  - INTERMITTENT CLAUDICATION [None]
